FAERS Safety Report 4938611-7 (Version None)
Quarter: 2006Q1

REPORT INFORMATION
  Report Type: 
  Country: None (occurrence: None)
  Receive Date: 20060306
  Receipt Date: 20060217
  Transmission Date: 20060701
  Serious: Yes (Disabling, Other)
  Sender: FDA-Public Use
  Company Number: US200602004123

PATIENT
  Age: 55 Year
  Sex: Male

DRUGS (2)
  1. HUMALOG [Suspect]
     Indication: DIABETES MELLITUS
  2. LANTUS [Concomitant]

REACTIONS (3)
  - BLOOD GLUCOSE INCREASED [None]
  - QUADRIPLEGIA [None]
  - ROAD TRAFFIC ACCIDENT [None]
